FAERS Safety Report 4355343-7 (Version None)
Quarter: 2004Q2

REPORT INFORMATION
  Report Type: 
  Country: None (occurrence: None)
  Receive Date: 20040504
  Receipt Date: 20040422
  Transmission Date: 20050107
  Serious: Yes (Hospitalization)
  Sender: FDA-Public Use
  Company Number: D01200401397

PATIENT
  Age: 74 Year
  Sex: Female
  Weight: 97 kg

DRUGS (16)
  1. CISPLATIN [Suspect]
     Indication: SMALL CELL LUNG CANCER EXTENSIVE STAGE
     Dosage: 80 MG/M2 CONT - INTRAVENOUS NOS
     Route: 042
     Dates: start: 20040416, end: 20040416
  2. ETOPOSIDE [Suspect]
     Indication: SMALL CELL LUNG CANCER EXTENSIVE STAGE
     Dosage: 120 MG/M2 GIVEN ON DAYS 1, 2 AND 3, IN A 30-MINUTE INFUSION - INTRAVENOUS NOS
     Route: 042
     Dates: start: 20040416, end: 20040418
  3. DIGOXIN [Concomitant]
  4. SELOKOMB [Concomitant]
  5. ACENOCOUMAROL [Concomitant]
  6. AMIODARONE HCL [Concomitant]
  7. CANDESARTAN CILEXETIL [Concomitant]
  8. ALBUTEROL SULFATE [Concomitant]
  9. DICLOFENAC [Concomitant]
  10. AMOXI-CLAVULANICO [Concomitant]
  11. FERROUS FUMARATE [Concomitant]
  12. FOLIC ACID [Concomitant]
  13. DARBEPOETIN ALFA [Concomitant]
  14. GRANISETRON [Concomitant]
  15. DEXAMETHASONE [Concomitant]
  16. FUROSEMIDE [Concomitant]

REACTIONS (7)
  - BLOOD CALCIUM DECREASED [None]
  - BLOOD CREATININE INCREASED [None]
  - BLOOD UREA INCREASED [None]
  - DEHYDRATION [None]
  - DIZZINESS [None]
  - DRUG TOXICITY [None]
  - HYPOTENSION [None]
